FAERS Safety Report 25520153 (Version 4)
Quarter: 2025Q3

REPORT INFORMATION
  Report Type: Spontaneous
  Country: CA (occurrence: CA)
  Receive Date: 20250704
  Receipt Date: 20250821
  Transmission Date: 20251020
  Serious: Yes (Life-Threatening, Hospitalization, Disabling, Other)
  Sender: BRISTOL-MYERS SQUIBB COMPANY
  Company Number: CA-BRISTOL-MYERS SQUIBB COMPANY-2025-094488

PATIENT
  Age: 40 Year
  Sex: Female
  Weight: 96 kg

DRUGS (387)
  1. TRIAMCINOLONE ACETONIDE [Suspect]
     Active Substance: TRIAMCINOLONE ACETONIDE
     Indication: Rheumatoid arthritis
     Route: 013
  2. TRIAMCINOLONE ACETONIDE [Suspect]
     Active Substance: TRIAMCINOLONE ACETONIDE
  3. TRIAMCINOLONE ACETONIDE [Suspect]
     Active Substance: TRIAMCINOLONE ACETONIDE
  4. ORENCIA [Suspect]
     Active Substance: ABATACEPT
     Indication: Rheumatoid arthritis
  5. ORENCIA [Suspect]
     Active Substance: ABATACEPT
  6. ORENCIA [Suspect]
     Active Substance: ABATACEPT
  7. ORENCIA [Suspect]
     Active Substance: ABATACEPT
  8. ORENCIA [Suspect]
     Active Substance: ABATACEPT
  9. ORENCIA [Suspect]
     Active Substance: ABATACEPT
     Indication: Rheumatoid arthritis
     Route: 042
  10. ORENCIA [Suspect]
     Active Substance: ABATACEPT
     Indication: Rheumatoid arthritis
     Route: 058
  11. VITAMIN C [Concomitant]
     Active Substance: ASCORBIC ACID
     Indication: Product used for unknown indication
  12. ACETAMINOPHEN [Concomitant]
     Active Substance: ACETAMINOPHEN
     Indication: Rheumatoid arthritis
  13. ACETAMINOPHEN [Concomitant]
     Active Substance: ACETAMINOPHEN
     Indication: Arthralgia
     Route: 058
  14. ACETAMINOPHEN [Concomitant]
     Active Substance: ACETAMINOPHEN
  15. ACETAMINOPHEN AND CODEINE [Concomitant]
     Active Substance: ACETAMINOPHEN\CODEINE PHOSPHATE
     Indication: Product used for unknown indication
  16. ACTEMRA [Concomitant]
     Active Substance: TOCILIZUMAB
     Indication: Product used for unknown indication
  17. ALENDRONATE SODIUM [Concomitant]
     Active Substance: ALENDRONATE SODIUM
     Indication: Rheumatoid arthritis
  18. ALENDRONATE SODIUM [Concomitant]
     Active Substance: ALENDRONATE SODIUM
     Route: 048
  19. ALENDRONATE SODIUM [Concomitant]
     Active Substance: ALENDRONATE SODIUM
  20. ALENDRONATE SODIUM [Concomitant]
     Active Substance: ALENDRONATE SODIUM
     Route: 048
  21. ALENDRONATE SODIUM [Concomitant]
     Active Substance: ALENDRONATE SODIUM
     Route: 048
  22. LEFLUNOMIDE [Concomitant]
     Active Substance: LEFLUNOMIDE
     Indication: Product used for unknown indication
  23. PREDNISONE [Concomitant]
     Active Substance: PREDNISONE
     Indication: Rheumatoid arthritis
     Route: 048
  24. PREDNISONE [Concomitant]
     Active Substance: PREDNISONE
  25. PREDNISONE [Concomitant]
     Active Substance: PREDNISONE
  26. PREDNISONE [Concomitant]
     Active Substance: PREDNISONE
     Route: 048
  27. PREDNISONE [Concomitant]
     Active Substance: PREDNISONE
  28. PREDNISONE [Concomitant]
     Active Substance: PREDNISONE
     Route: 048
  29. PREDNISONE [Concomitant]
     Active Substance: PREDNISONE
     Route: 048
  30. PREDNISONE [Concomitant]
     Active Substance: PREDNISONE
  31. PREDNISONE [Concomitant]
     Active Substance: PREDNISONE
     Route: 048
  32. ARAVA [Concomitant]
     Active Substance: LEFLUNOMIDE
     Indication: Rheumatoid arthritis
     Route: 048
  33. ARAVA [Concomitant]
     Active Substance: LEFLUNOMIDE
     Route: 048
  34. ARAVA [Concomitant]
     Active Substance: LEFLUNOMIDE
     Route: 048
  35. ARAVA [Concomitant]
     Active Substance: LEFLUNOMIDE
  36. ARAVA [Concomitant]
     Active Substance: LEFLUNOMIDE
     Route: 048
  37. ATOMOXETINE HYDROCHLORIDE [Concomitant]
     Active Substance: ATOMOXETINE HYDROCHLORIDE
     Indication: Migraine
  38. ATOMOXETINE HYDROCHLORIDE [Concomitant]
     Active Substance: ATOMOXETINE HYDROCHLORIDE
  39. AZATHIOPRINE [Concomitant]
     Active Substance: AZATHIOPRINE
     Indication: Rheumatoid arthritis
  40. AZATHIOPRINE [Concomitant]
     Active Substance: AZATHIOPRINE
  41. BERINERT [Concomitant]
     Active Substance: HUMAN C1-ESTERASE INHIBITOR
     Indication: Product used for unknown indication
  42. BOTULINUM TOXIN TYPE A [Concomitant]
     Active Substance: BOTULINUM TOXIN TYPE A
     Indication: Product used for unknown indication
  43. BUTRANS [Concomitant]
     Active Substance: BUPRENORPHINE
     Indication: Product used for unknown indication
  44. CALCIUM ASCORBATE [Concomitant]
     Active Substance: CALCIUM ASCORBATE
     Indication: Product used for unknown indication
  45. CALCIUM CARBONATE [Concomitant]
     Active Substance: CALCIUM CARBONATE
     Indication: Product used for unknown indication
  46. CALCIUM CARBONATE\CHOLECALCIFEROL [Concomitant]
     Active Substance: CALCIUM CARBONATE\CHOLECALCIFEROL
     Indication: Product used for unknown indication
  47. CALCIUM CITRATE [Concomitant]
     Active Substance: CALCIUM CITRATE
     Indication: Product used for unknown indication
  48. CALCIUM GLUBIONATE [Concomitant]
     Active Substance: CALCIUM GLUBIONATE
     Indication: Product used for unknown indication
  49. CANDESARTAN [Concomitant]
     Active Substance: CANDESARTAN
     Indication: Migraine
     Route: 048
  50. CELECOXIB [Concomitant]
     Active Substance: CELECOXIB
     Indication: Product used for unknown indication
  51. CETIRIZINE [Concomitant]
     Active Substance: CETIRIZINE HYDROCHLORIDE
     Indication: Rheumatoid arthritis
  52. CETIRIZINE [Concomitant]
     Active Substance: CETIRIZINE HYDROCHLORIDE
  53. CETIRIZINE [Concomitant]
     Active Substance: CETIRIZINE HYDROCHLORIDE
     Route: 048
  54. CETIRIZINE [Concomitant]
     Active Substance: CETIRIZINE HYDROCHLORIDE
     Route: 048
  55. CETIRIZINE HYDROCHLORIDE [Concomitant]
     Active Substance: CETIRIZINE HYDROCHLORIDE
     Indication: Rheumatoid arthritis
  56. CETIRIZINE HYDROCHLORIDE [Concomitant]
     Active Substance: CETIRIZINE HYDROCHLORIDE
  57. CHLORHEXIDINE GLUCONATE [Concomitant]
     Active Substance: CHLORHEXIDINE GLUCONATE
     Indication: Product used for unknown indication
  58. CHLORHEXIDINE GLUCONATE [Concomitant]
     Active Substance: CHLORHEXIDINE GLUCONATE
  59. CHLORHEXIDINE GLUCONATE\ISOPROPYL ALCOHOL [Concomitant]
     Active Substance: CHLORHEXIDINE GLUCONATE\ISOPROPYL ALCOHOL
     Indication: Product used for unknown indication
  60. CIMZIA [Concomitant]
     Active Substance: CERTOLIZUMAB PEGOL
     Indication: Rheumatoid arthritis
     Route: 058
  61. CIMZIA [Concomitant]
     Active Substance: CERTOLIZUMAB PEGOL
     Indication: Psoriasis
  62. CIMZIA [Concomitant]
     Active Substance: CERTOLIZUMAB PEGOL
  63. CIMZIA [Concomitant]
     Active Substance: CERTOLIZUMAB PEGOL
  64. CORTISONE ACETATE [Concomitant]
     Active Substance: CORTISONE ACETATE
     Indication: Rheumatoid arthritis
  65. CORTISONE ACETATE [Concomitant]
     Active Substance: CORTISONE ACETATE
  66. COSENTYX [Concomitant]
     Active Substance: SECUKINUMAB
     Indication: Psoriatic arthropathy
  67. COSENTYX [Concomitant]
     Active Substance: SECUKINUMAB
  68. COSENTYX [Concomitant]
     Active Substance: SECUKINUMAB
     Route: 048
  69. COSENTYX [Concomitant]
     Active Substance: SECUKINUMAB
  70. COSENTYX [Concomitant]
     Active Substance: SECUKINUMAB
  71. COSENTYX [Concomitant]
     Active Substance: SECUKINUMAB
     Route: 058
  72. COSENTYX [Concomitant]
     Active Substance: SECUKINUMAB
  73. CUPRIC OXIDE\FOLIC ACID\NIACIN\ZINC OXIDE [Concomitant]
     Active Substance: CUPRIC OXIDE\FOLIC ACID\NIACIN\ZINC OXIDE
     Indication: Product used for unknown indication
  74. DESOXIMETASONE [Concomitant]
     Active Substance: DESOXIMETASONE
     Indication: Rheumatoid arthritis
  75. DESOXIMETASONE [Concomitant]
     Active Substance: DESOXIMETASONE
  76. DESOXIMETASONE [Concomitant]
     Active Substance: DESOXIMETASONE
     Route: 048
  77. DESOXIMETASONE [Concomitant]
     Active Substance: DESOXIMETASONE
     Route: 058
  78. DESOXIMETASONE [Concomitant]
     Active Substance: DESOXIMETASONE
     Route: 048
  79. DICLOFENAC [Concomitant]
     Active Substance: DICLOFENAC
     Indication: Product used for unknown indication
  80. DICLOFENAC POTASSIUM [Concomitant]
     Active Substance: DICLOFENAC POTASSIUM
     Indication: Product used for unknown indication
  81. DICLOFENAC SODIUM [Concomitant]
     Active Substance: DICLOFENAC SODIUM
     Indication: Product used for unknown indication
  82. DOMPERIDONE MALEATE [Concomitant]
     Active Substance: DOMPERIDONE MALEATE
     Indication: Product used for unknown indication
  83. ENBREL [Concomitant]
     Active Substance: ETANERCEPT
     Indication: Rheumatoid arthritis
     Route: 058
  84. ENBREL [Concomitant]
     Active Substance: ETANERCEPT
  85. ENBREL [Concomitant]
     Active Substance: ETANERCEPT
     Route: 058
  86. ENBREL [Concomitant]
     Active Substance: ETANERCEPT
     Route: 058
  87. ENBREL [Concomitant]
     Active Substance: ETANERCEPT
     Route: 058
  88. ENBREL [Concomitant]
     Active Substance: ETANERCEPT
  89. ERELZI [Concomitant]
     Active Substance: ETANERCEPT-SZZS
     Indication: Rheumatoid arthritis
     Route: 058
  90. ERELZI [Concomitant]
     Active Substance: ETANERCEPT-SZZS
     Route: 058
  91. ERELZI [Concomitant]
     Active Substance: ETANERCEPT-SZZS
     Route: 058
  92. ERELZI [Concomitant]
     Active Substance: ETANERCEPT-SZZS
  93. ERELZI [Concomitant]
     Active Substance: ETANERCEPT-SZZS
     Route: 058
  94. ERELZI [Concomitant]
     Active Substance: ETANERCEPT-SZZS
  95. ERELZI [Concomitant]
     Active Substance: ETANERCEPT-SZZS
  96. ERENUMAB-AOOE [Concomitant]
     Active Substance: ERENUMAB-AOOE
     Indication: Migraine
     Route: 058
  97. ERGOCALCIFEROL [Concomitant]
     Active Substance: ERGOCALCIFEROL
     Indication: Product used for unknown indication
  98. ERGOCALCIFEROL [Concomitant]
     Active Substance: ERGOCALCIFEROL
  99. FLUMETHASONE [Concomitant]
     Active Substance: FLUMETHASONE
     Indication: Product used for unknown indication
  100. FLUMETHASONE PIVALATE [Concomitant]
     Active Substance: FLUMETHASONE PIVALATE
     Indication: Product used for unknown indication
  101. FLUMETHASONE PIVALATE [Concomitant]
     Active Substance: FLUMETHASONE PIVALATE
     Route: 058
  102. FOLIC ACID [Concomitant]
     Active Substance: FOLIC ACID
     Indication: Product used for unknown indication
  103. FOSAMAX [Concomitant]
     Active Substance: ALENDRONATE SODIUM
     Indication: Rheumatoid arthritis
  104. FOSAMAX [Concomitant]
     Active Substance: ALENDRONATE SODIUM
     Route: 048
  105. GOLD [Concomitant]
     Active Substance: GOLD
     Indication: Product used for unknown indication
  106. HAIR KERATIN AMINO ACIDS GOLD COMPLEX [Concomitant]
     Active Substance: HAIR KERATIN AMINO ACIDS GOLD COMPLEX
     Indication: Product used for unknown indication
  107. GOLD SODIUM THIOMALATE [Concomitant]
     Active Substance: GOLD SODIUM THIOMALATE
     Indication: Product used for unknown indication
  108. HYDROCORTISONE BUTYRATE [Concomitant]
     Active Substance: HYDROCORTISONE BUTYRATE
     Indication: Product used for unknown indication
  109. HYDROCORTISONE PROBUTATE [Concomitant]
     Active Substance: HYDROCORTISONE PROBUTATE
     Indication: Product used for unknown indication
  110. HYDROXYCHLOROQUINE [Concomitant]
     Active Substance: HYDROXYCHLOROQUINE
     Indication: Product used for unknown indication
  111. HYDROXYCHLOROQUINE SULFATE [Concomitant]
     Active Substance: HYDROXYCHLOROQUINE SULFATE
     Indication: Rheumatoid arthritis
  112. HYDROXYCHLOROQUINE SULFATE [Concomitant]
     Active Substance: HYDROXYCHLOROQUINE SULFATE
     Route: 048
  113. HYDROXYCHLOROQUINE SULFATE [Concomitant]
     Active Substance: HYDROXYCHLOROQUINE SULFATE
  114. HYDROXYCHLOROQUINE SULFATE [Concomitant]
     Active Substance: HYDROXYCHLOROQUINE SULFATE
     Route: 058
  115. HYDROXYCHLOROQUINE SULFATE [Concomitant]
     Active Substance: HYDROXYCHLOROQUINE SULFATE
     Route: 048
  116. HYDROXYCHLOROQUINE SULFATE [Concomitant]
     Active Substance: HYDROXYCHLOROQUINE SULFATE
     Route: 013
  117. HYDROXYCHLOROQUINE SULFATE [Concomitant]
     Active Substance: HYDROXYCHLOROQUINE SULFATE
     Route: 048
  118. HYRIMOZ [Concomitant]
     Active Substance: ADALIMUMAB-ADAZ
     Indication: Rheumatoid arthritis
     Route: 058
  119. HYRIMOZ [Concomitant]
     Active Substance: ADALIMUMAB-ADAZ
     Route: 058
  120. HYRIMOZ [Concomitant]
     Active Substance: ADALIMUMAB-ADAZ
     Route: 058
  121. HYRIMOZ [Concomitant]
     Active Substance: ADALIMUMAB-ADAZ
  122. HYRIMOZ [Concomitant]
     Active Substance: ADALIMUMAB-ADAZ
  123. HYRIMOZ [Concomitant]
     Active Substance: ADALIMUMAB-ADAZ
     Route: 058
  124. HYRIMOZ [Concomitant]
     Active Substance: ADALIMUMAB-ADAZ
     Route: 058
  125. HYRIMOZ [Concomitant]
     Active Substance: ADALIMUMAB-ADAZ
     Route: 058
  126. INFLIXIMAB [Concomitant]
     Active Substance: INFLIXIMAB
     Indication: Rheumatoid arthritis
     Route: 042
  127. INFLIXIMAB [Concomitant]
     Active Substance: INFLIXIMAB
  128. INFLIXIMAB [Concomitant]
     Active Substance: INFLIXIMAB
  129. INFLIXIMAB [Concomitant]
     Active Substance: INFLIXIMAB
  130. INFLIXIMAB [Concomitant]
     Active Substance: INFLIXIMAB
     Route: 042
  131. INFLIXIMAB [Concomitant]
     Active Substance: INFLIXIMAB
  132. INFLIXIMAB [Concomitant]
     Active Substance: INFLIXIMAB
  133. INFLIXIMAB [Concomitant]
     Active Substance: INFLIXIMAB
  134. INFLIXIMAB [Concomitant]
     Active Substance: INFLIXIMAB
  135. INFLIXIMAB [Concomitant]
     Active Substance: INFLIXIMAB
  136. INFLIXIMAB [Concomitant]
     Active Substance: INFLIXIMAB
  137. INFLIXIMAB [Concomitant]
     Active Substance: INFLIXIMAB
  138. INFLIXIMAB [Concomitant]
     Active Substance: INFLIXIMAB
  139. INFLIXIMAB [Concomitant]
     Active Substance: INFLIXIMAB
  140. ISOPROPYL ALCOHOL [Concomitant]
     Active Substance: ISOPROPYL ALCOHOL
     Indication: Product used for unknown indication
     Route: 061
  141. KEVZARA [Concomitant]
     Active Substance: SARILUMAB
     Indication: Product used for unknown indication
  142. LAMICTAL [Concomitant]
     Active Substance: LAMOTRIGINE
     Indication: Product used for unknown indication
  143. LAMICTAL [Concomitant]
     Active Substance: LAMOTRIGINE
  144. LAMICTAL [Concomitant]
     Active Substance: LAMOTRIGINE
  145. LAMICTAL [Concomitant]
     Active Substance: LAMOTRIGINE
     Route: 048
  146. MAGNESIUM CITRATE [Concomitant]
     Active Substance: MAGNESIUM CITRATE
     Indication: Product used for unknown indication
  147. MAGNESIUM CITRATE [Concomitant]
     Active Substance: MAGNESIUM CITRATE
  148. MAGNESIUM CITRATE [Concomitant]
     Active Substance: MAGNESIUM CITRATE
  149. MAGNESIUM CITRATE [Concomitant]
     Active Substance: MAGNESIUM CITRATE
  150. MAGNESIUM CITRATE [Concomitant]
     Active Substance: MAGNESIUM CITRATE
  151. METFORMIN HYDROCHLORIDE [Concomitant]
     Active Substance: METFORMIN HYDROCHLORIDE
     Indication: Rheumatoid arthritis
  152. METHYLPREDNISOLONE ACETATE [Concomitant]
     Active Substance: METHYLPREDNISOLONE ACETATE
     Indication: Rheumatoid arthritis
     Route: 048
  153. METHYLPREDNISOLONE ACETATE [Concomitant]
     Active Substance: METHYLPREDNISOLONE ACETATE
     Route: 058
  154. METHYLPREDNISOLONE ACETATE [Concomitant]
     Active Substance: METHYLPREDNISOLONE ACETATE
     Route: 048
  155. METHYLPREDNISOLONE ACETATE [Concomitant]
     Active Substance: METHYLPREDNISOLONE ACETATE
  156. METHYLPREDNISOLONE SODIUM SUCCINATE [Concomitant]
     Active Substance: METHYLPREDNISOLONE SODIUM SUCCINATE
     Indication: Product used for unknown indication
  157. METHYLPREDNISOLONE SODIUM SUCCINATE [Concomitant]
     Active Substance: METHYLPREDNISOLONE SODIUM SUCCINATE
  158. MINOCYCLINE HYDROCHLORIDE [Concomitant]
     Active Substance: MINOCYCLINE HYDROCHLORIDE
     Indication: Product used for unknown indication
     Route: 048
  159. MINOCYCLINE HYDROCHLORIDE [Concomitant]
     Active Substance: MINOCYCLINE HYDROCHLORIDE
  160. MYOCHRYSINE [Concomitant]
     Active Substance: GOLD SODIUM THIOMALATE
     Indication: Rheumatoid arthritis
  161. MYOCHRYSINE [Concomitant]
     Active Substance: GOLD SODIUM THIOMALATE
  162. MYOCHRYSINE [Concomitant]
     Active Substance: GOLD SODIUM THIOMALATE
     Route: 048
  163. MYOCHRYSINE [Concomitant]
     Active Substance: GOLD SODIUM THIOMALATE
  164. MYOCHRYSINE [Concomitant]
     Active Substance: GOLD SODIUM THIOMALATE
  165. MYOCHRYSINE [Concomitant]
     Active Substance: GOLD SODIUM THIOMALATE
     Route: 048
  166. MYOCHRYSINE [Concomitant]
     Active Substance: GOLD SODIUM THIOMALATE
  167. MYOCHRYSINE [Concomitant]
     Active Substance: GOLD SODIUM THIOMALATE
  168. MYOCHRYSINE [Concomitant]
     Active Substance: GOLD SODIUM THIOMALATE
  169. MYOCHRYSINE [Concomitant]
     Active Substance: GOLD SODIUM THIOMALATE
  170. MYOCHRYSINE [Concomitant]
     Active Substance: GOLD SODIUM THIOMALATE
  171. MYOCHRYSINE [Concomitant]
     Active Substance: GOLD SODIUM THIOMALATE
  172. MYOCHRYSINE [Concomitant]
     Active Substance: GOLD SODIUM THIOMALATE
  173. MYOCHRYSINE [Concomitant]
     Active Substance: GOLD SODIUM THIOMALATE
  174. MYOCHRYSINE [Concomitant]
     Active Substance: GOLD SODIUM THIOMALATE
  175. MYOCHRYSINE [Concomitant]
     Active Substance: GOLD SODIUM THIOMALATE
  176. MYOCHRYSINE [Concomitant]
     Active Substance: GOLD SODIUM THIOMALATE
  177. MYOCHRYSINE [Concomitant]
     Active Substance: GOLD SODIUM THIOMALATE
  178. MYOCHRYSINE [Concomitant]
     Active Substance: GOLD SODIUM THIOMALATE
     Route: 030
  179. MYRBETRIQ [Concomitant]
     Active Substance: MIRABEGRON
     Indication: Rheumatoid arthritis
  180. NAPROXEN [Concomitant]
     Active Substance: NAPROXEN
     Indication: Product used for unknown indication
     Route: 048
  181. NAPROXEN [Concomitant]
     Active Substance: NAPROXEN
     Route: 048
  182. NAPROXEN [Concomitant]
     Active Substance: NAPROXEN
     Route: 048
  183. NAPROXEN [Concomitant]
     Active Substance: NAPROXEN
  184. NAPROXEN [Concomitant]
     Active Substance: NAPROXEN
     Route: 048
  185. NAPROXEN SODIUM [Concomitant]
     Active Substance: NAPROXEN SODIUM
     Indication: Product used for unknown indication
  186. NAPROXEN SODIUM [Concomitant]
     Active Substance: NAPROXEN SODIUM
  187. NUCALA [Concomitant]
     Active Substance: MEPOLIZUMAB
     Indication: Product used for unknown indication
  188. NUCALA [Concomitant]
     Active Substance: MEPOLIZUMAB
     Route: 048
  189. NUCALA [Concomitant]
     Active Substance: MEPOLIZUMAB
  190. NUCALA [Concomitant]
     Active Substance: MEPOLIZUMAB
  191. NUCALA [Concomitant]
     Active Substance: MEPOLIZUMAB
     Route: 048
  192. NUCALA [Concomitant]
     Active Substance: MEPOLIZUMAB
     Route: 048
  193. NUCALA [Concomitant]
     Active Substance: MEPOLIZUMAB
     Route: 048
  194. NUCALA [Concomitant]
     Active Substance: MEPOLIZUMAB
     Route: 048
  195. NUCALA [Concomitant]
     Active Substance: MEPOLIZUMAB
     Route: 048
  196. NUCALA [Concomitant]
     Active Substance: MEPOLIZUMAB
     Route: 048
  197. NUCALA [Concomitant]
     Active Substance: MEPOLIZUMAB
     Route: 048
  198. NUCALA [Concomitant]
     Active Substance: MEPOLIZUMAB
     Route: 048
  199. NUCALA [Concomitant]
     Active Substance: MEPOLIZUMAB
     Route: 048
  200. NUCALA [Concomitant]
     Active Substance: MEPOLIZUMAB
     Route: 048
  201. NUCALA [Concomitant]
     Active Substance: MEPOLIZUMAB
     Route: 048
  202. NUCALA [Concomitant]
     Active Substance: MEPOLIZUMAB
     Route: 048
  203. NUCALA [Concomitant]
     Active Substance: MEPOLIZUMAB
  204. NUCALA [Concomitant]
     Active Substance: MEPOLIZUMAB
     Route: 048
  205. NUCALA [Concomitant]
     Active Substance: MEPOLIZUMAB
  206. NUCALA [Concomitant]
     Active Substance: MEPOLIZUMAB
  207. NUCALA [Concomitant]
     Active Substance: MEPOLIZUMAB
     Route: 048
  208. NUCALA [Concomitant]
     Active Substance: MEPOLIZUMAB
  209. NUCALA [Concomitant]
     Active Substance: MEPOLIZUMAB
  210. OTEZLA [Concomitant]
     Active Substance: APREMILAST
     Indication: Product used for unknown indication
  211. OXYCODONE [Concomitant]
     Active Substance: OXYCODONE
     Indication: Product used for unknown indication
  212. OXYCODONE [Concomitant]
     Active Substance: OXYCODONE
  213. PHTHALYLSULFATHIAZOLE [Concomitant]
     Active Substance: PHTHALYLSULFATHIAZOLE
     Indication: Rheumatoid arthritis
     Route: 058
  214. PHTHALYLSULFATHIAZOLE [Concomitant]
     Active Substance: PHTHALYLSULFATHIAZOLE
     Route: 058
  215. PHTHALYLSULFATHIAZOLE [Concomitant]
     Active Substance: PHTHALYLSULFATHIAZOLE
     Route: 048
  216. PHTHALYLSULFATHIAZOLE [Concomitant]
     Active Substance: PHTHALYLSULFATHIAZOLE
     Route: 048
  217. PHTHALYLSULFATHIAZOLE [Concomitant]
     Active Substance: PHTHALYLSULFATHIAZOLE
  218. PHTHALYLSULFATHIAZOLE [Concomitant]
     Active Substance: PHTHALYLSULFATHIAZOLE
  219. PHTHALYLSULFATHIAZOLE [Concomitant]
     Active Substance: PHTHALYLSULFATHIAZOLE
  220. PHTHALYLSULFATHIAZOLE [Concomitant]
     Active Substance: PHTHALYLSULFATHIAZOLE
  221. PHTHALYLSULFATHIAZOLE [Concomitant]
     Active Substance: PHTHALYLSULFATHIAZOLE
  222. PHTHALYLSULFATHIAZOLE [Concomitant]
     Active Substance: PHTHALYLSULFATHIAZOLE
  223. PREDNISONE [Concomitant]
     Active Substance: PREDNISONE
     Indication: Rheumatoid arthritis
  224. PREDNISONE [Concomitant]
     Active Substance: PREDNISONE
     Route: 048
  225. PREDNISONE [Concomitant]
     Active Substance: PREDNISONE
  226. PREDNISONE [Concomitant]
     Active Substance: PREDNISONE
  227. PREDNISONE [Concomitant]
     Active Substance: PREDNISONE
  228. PREDNISONE [Concomitant]
     Active Substance: PREDNISONE
  229. PREDNISONE [Concomitant]
     Active Substance: PREDNISONE
  230. PREDNISONE [Concomitant]
     Active Substance: PREDNISONE
  231. PREDNISONE [Concomitant]
     Active Substance: PREDNISONE
     Route: 048
  232. PSEUDOEPHEDRINE [Concomitant]
     Active Substance: PSEUDOEPHEDRINE
     Indication: Product used for unknown indication
  233. PSEUDOEPHEDRINE [Concomitant]
     Active Substance: PSEUDOEPHEDRINE
  234. PSEUDOEPHEDRINE [Concomitant]
     Active Substance: PSEUDOEPHEDRINE
  235. PSEUDOEPHEDRINE HYDROCHLORIDE [Concomitant]
     Active Substance: PSEUDOEPHEDRINE HYDROCHLORIDE
     Indication: Rheumatoid arthritis
  236. PSEUDOEPHEDRINE HYDROCHLORIDE [Concomitant]
     Active Substance: PSEUDOEPHEDRINE HYDROCHLORIDE
  237. PSEUDOEPHEDRINE HYDROCHLORIDE [Concomitant]
     Active Substance: PSEUDOEPHEDRINE HYDROCHLORIDE
     Route: 058
  238. PSEUDOEPHEDRINE HYDROCHLORIDE [Concomitant]
     Active Substance: PSEUDOEPHEDRINE HYDROCHLORIDE
     Route: 058
  239. PSEUDOEPHEDRINE HYDROCHLORIDE [Concomitant]
     Active Substance: PSEUDOEPHEDRINE HYDROCHLORIDE
     Route: 058
  240. PSEUDOEPHEDRINE HYDROCHLORIDE [Concomitant]
     Active Substance: PSEUDOEPHEDRINE HYDROCHLORIDE
     Route: 058
  241. PSEUDOEPHEDRINE HYDROCHLORIDE [Concomitant]
     Active Substance: PSEUDOEPHEDRINE HYDROCHLORIDE
     Route: 058
  242. PSEUDOEPHEDRINE HYDROCHLORIDE [Concomitant]
     Active Substance: PSEUDOEPHEDRINE HYDROCHLORIDE
  243. PSEUDOEPHEDRINE HYDROCHLORIDE [Concomitant]
     Active Substance: PSEUDOEPHEDRINE HYDROCHLORIDE
  244. PSEUDOEPHEDRINE HYDROCHLORIDE [Concomitant]
     Active Substance: PSEUDOEPHEDRINE HYDROCHLORIDE
  245. PSEUDOEPHEDRINE HYDROCHLORIDE [Concomitant]
     Active Substance: PSEUDOEPHEDRINE HYDROCHLORIDE
  246. PSEUDOEPHEDRINE HYDROCHLORIDE [Concomitant]
     Active Substance: PSEUDOEPHEDRINE HYDROCHLORIDE
  247. PSEUDOEPHEDRINE HYDROCHLORIDE [Concomitant]
     Active Substance: PSEUDOEPHEDRINE HYDROCHLORIDE
  248. RAMIPRIL [Concomitant]
     Active Substance: RAMIPRIL
     Indication: Product used for unknown indication
     Route: 016
  249. RAMIPRIL [Concomitant]
     Active Substance: RAMIPRIL
  250. RANITIDINE HYDROCHLORIDE [Concomitant]
     Active Substance: RANITIDINE HYDROCHLORIDE
     Indication: Product used for unknown indication
  251. RANITIDINE HYDROCHLORIDE [Concomitant]
     Active Substance: RANITIDINE HYDROCHLORIDE
     Route: 042
  252. RANITIDINE HYDROCHLORIDE [Concomitant]
     Active Substance: RANITIDINE HYDROCHLORIDE
  253. RANITIDINE HYDROCHLORIDE [Concomitant]
     Active Substance: RANITIDINE HYDROCHLORIDE
  254. RANITIDINE HYDROCHLORIDE [Concomitant]
     Active Substance: RANITIDINE HYDROCHLORIDE
  255. REMICADE [Concomitant]
     Active Substance: INFLIXIMAB
     Indication: Rheumatoid arthritis
  256. REMICADE [Concomitant]
     Active Substance: INFLIXIMAB
     Route: 042
  257. REMICADE [Concomitant]
     Active Substance: INFLIXIMAB
     Dosage: POWDER FOR SOLUTION FOR?INJECTION/INFUSION
  258. REMICADE [Concomitant]
     Active Substance: INFLIXIMAB
     Dosage: POWDER FOR SOLUTION FOR?INJECTION/INFUSION
  259. REMICADE [Concomitant]
     Active Substance: INFLIXIMAB
     Route: 043
  260. RITUXIMAB [Concomitant]
     Active Substance: RITUXIMAB
     Indication: Rheumatoid arthritis
  261. RITUXIMAB [Concomitant]
     Active Substance: RITUXIMAB
  262. RITUXIMAB [Concomitant]
     Active Substance: RITUXIMAB
  263. RITUXIMAB [Concomitant]
     Active Substance: RITUXIMAB
  264. RITUXIMAB [Concomitant]
     Active Substance: RITUXIMAB
     Route: 042
  265. RITUXIMAB [Concomitant]
     Active Substance: RITUXIMAB
  266. RITUXIMAB [Concomitant]
     Active Substance: RITUXIMAB
     Route: 019
  267. RITUXIMAB [Concomitant]
     Active Substance: RITUXIMAB
     Route: 016
  268. RITUXIMAB [Concomitant]
     Active Substance: RITUXIMAB
  269. RITUXIMAB [Concomitant]
     Active Substance: RITUXIMAB
  270. RITUXIMAB [Concomitant]
     Active Substance: RITUXIMAB
  271. RITUXIMAB [Concomitant]
     Active Substance: RITUXIMAB
  272. RITUXIMAB [Concomitant]
     Active Substance: RITUXIMAB
  273. RITUXIMAB [Concomitant]
     Active Substance: RITUXIMAB
  274. RITUXIMAB [Concomitant]
     Active Substance: RITUXIMAB
  275. RITUXIMAB [Concomitant]
     Active Substance: RITUXIMAB
     Route: 042
  276. RITUXIMAB [Concomitant]
     Active Substance: RITUXIMAB
     Route: 016
  277. RITUXIMAB [Concomitant]
     Active Substance: RITUXIMAB
     Route: 040
  278. RITUXIMAB [Concomitant]
     Active Substance: RITUXIMAB
     Route: 042
  279. RITUXIMAB [Concomitant]
     Active Substance: RITUXIMAB
     Route: 043
  280. RITUXIMAB [Concomitant]
     Active Substance: RITUXIMAB
     Route: 040
  281. RITUXIMAB [Concomitant]
     Active Substance: RITUXIMAB
  282. RITUXIMAB [Concomitant]
     Active Substance: RITUXIMAB
     Route: 016
  283. RITUXIMAB [Concomitant]
     Active Substance: RITUXIMAB
     Route: 042
  284. RITUXIMAB [Concomitant]
     Active Substance: RITUXIMAB
     Route: 042
  285. RITUXIMAB [Concomitant]
     Active Substance: RITUXIMAB
     Route: 042
  286. RITUXIMAB [Concomitant]
     Active Substance: RITUXIMAB
  287. RITUXIMAB [Concomitant]
     Active Substance: RITUXIMAB
  288. RITUXIMAB [Concomitant]
     Active Substance: RITUXIMAB
     Route: 042
  289. RITUXIMAB [Concomitant]
     Active Substance: RITUXIMAB
     Route: 042
  290. RITUXIMAB [Concomitant]
     Active Substance: RITUXIMAB
  291. RITUXIMAB [Concomitant]
     Active Substance: RITUXIMAB
     Route: 042
  292. RITUXIMAB [Concomitant]
     Active Substance: RITUXIMAB
     Route: 042
  293. RITUXIMAB [Concomitant]
     Active Substance: RITUXIMAB
     Route: 042
  294. SULFASALAZINE [Concomitant]
     Active Substance: SULFASALAZINE
     Indication: Rheumatoid arthritis
     Route: 048
  295. SULFASALAZINE [Concomitant]
     Active Substance: SULFASALAZINE
     Route: 048
  296. SULFASALAZINE [Concomitant]
     Active Substance: SULFASALAZINE
  297. SULFASALAZINE [Concomitant]
     Active Substance: SULFASALAZINE
  298. SULFASALAZINE [Concomitant]
     Active Substance: SULFASALAZINE
     Route: 058
  299. SULFASALAZINE [Concomitant]
     Active Substance: SULFASALAZINE
     Route: 058
  300. DICLOFENAC SODIUM [Concomitant]
     Active Substance: DICLOFENAC SODIUM
     Indication: Product used for unknown indication
  301. HYDROCORTISONE [Concomitant]
     Active Substance: HYDROCORTISONE
     Indication: Product used for unknown indication
  302. LEFLUNOMIDE [Concomitant]
     Active Substance: LEFLUNOMIDE
     Indication: Rheumatoid arthritis
  303. LEFLUNOMIDE [Concomitant]
     Active Substance: LEFLUNOMIDE
     Route: 048
  304. LEFLUNOMIDE [Concomitant]
     Active Substance: LEFLUNOMIDE
     Route: 048
  305. LEFLUNOMIDE [Concomitant]
     Active Substance: LEFLUNOMIDE
  306. LEFLUNOMIDE [Concomitant]
     Active Substance: LEFLUNOMIDE
  307. LEFLUNOMIDE [Concomitant]
     Active Substance: LEFLUNOMIDE
     Route: 048
  308. LEFLUNOMIDE [Concomitant]
     Active Substance: LEFLUNOMIDE
  309. TOPIRAMATE [Concomitant]
     Active Substance: TOPIRAMATE
     Indication: Product used for unknown indication
  310. TOPIRAMATE [Concomitant]
     Active Substance: TOPIRAMATE
  311. SIMPONI [Concomitant]
     Active Substance: GOLIMUMAB
     Indication: Rheumatoid arthritis
     Route: 048
  312. SIRUKUMAB [Concomitant]
     Active Substance: SIRUKUMAB
     Indication: Rheumatoid arthritis
     Route: 048
  313. SIRUKUMAB [Concomitant]
     Active Substance: SIRUKUMAB
     Indication: Prostatic specific antigen
  314. GOLD SODIUM THIOMALATE [Concomitant]
     Active Substance: GOLD SODIUM THIOMALATE
     Indication: Product used for unknown indication
     Route: 016
  315. GOLD SODIUM THIOMALATE [Concomitant]
     Active Substance: GOLD SODIUM THIOMALATE
  316. GOLD SODIUM THIOMALATE [Concomitant]
     Active Substance: GOLD SODIUM THIOMALATE
     Route: 048
  317. GOLD SODIUM THIOMALATE [Concomitant]
     Active Substance: GOLD SODIUM THIOMALATE
     Route: 058
  318. GOLD SODIUM THIOMALATE [Concomitant]
     Active Substance: GOLD SODIUM THIOMALATE
     Route: 030
  319. SULFAMETHOXAZOLE\TRIMETHOPRIM [Concomitant]
     Active Substance: SULFAMETHOXAZOLE\TRIMETHOPRIM
     Indication: Product used for unknown indication
  320. SULFASALAZINE [Concomitant]
     Active Substance: SULFASALAZINE
     Indication: Product used for unknown indication
  321. TOFACITINIB [Concomitant]
     Active Substance: TOFACITINIB
     Indication: Product used for unknown indication
  322. TRAMADOL HYDROCHLORIDE [Concomitant]
     Active Substance: TRAMADOL HYDROCHLORIDE
     Indication: Rheumatoid arthritis
  323. TRAMADOL HYDROCHLORIDE [Concomitant]
     Active Substance: TRAMADOL HYDROCHLORIDE
  324. XELJANZ [Concomitant]
     Active Substance: TOFACITINIB CITRATE
     Indication: Product used for unknown indication
  325. XELJANZ [Concomitant]
     Active Substance: TOFACITINIB CITRATE
     Route: 048
  326. XELJANZ [Concomitant]
     Active Substance: TOFACITINIB CITRATE
  327. XELJANZ [Concomitant]
     Active Substance: TOFACITINIB CITRATE
  328. XELJANZ [Concomitant]
     Active Substance: TOFACITINIB CITRATE
  329. XELJANZ [Concomitant]
     Active Substance: TOFACITINIB CITRATE
  330. XELJANZ [Concomitant]
     Active Substance: TOFACITINIB CITRATE
  331. XELJANZ [Concomitant]
     Active Substance: TOFACITINIB CITRATE
  332. XELJANZ [Concomitant]
     Active Substance: TOFACITINIB CITRATE
  333. XELJANZ [Concomitant]
     Active Substance: TOFACITINIB CITRATE
  334. XELJANZ [Concomitant]
     Active Substance: TOFACITINIB CITRATE
  335. XELJANZ [Concomitant]
     Active Substance: TOFACITINIB CITRATE
  336. XELJANZ [Concomitant]
     Active Substance: TOFACITINIB CITRATE
  337. XELJANZ [Concomitant]
     Active Substance: TOFACITINIB CITRATE
  338. XELJANZ [Concomitant]
     Active Substance: TOFACITINIB CITRATE
  339. XELJANZ [Concomitant]
     Active Substance: TOFACITINIB CITRATE
  340. XELJANZ [Concomitant]
     Active Substance: TOFACITINIB CITRATE
     Route: 030
  341. XELJANZ [Concomitant]
     Active Substance: TOFACITINIB CITRATE
     Route: 030
  342. XELJANZ [Concomitant]
     Active Substance: TOFACITINIB CITRATE
  343. XELJANZ [Concomitant]
     Active Substance: TOFACITINIB CITRATE
  344. XELJANZ [Concomitant]
     Active Substance: TOFACITINIB CITRATE
  345. XELJANZ [Concomitant]
     Active Substance: TOFACITINIB CITRATE
     Route: 048
  346. XELJANZ [Concomitant]
     Active Substance: TOFACITINIB CITRATE
     Route: 048
  347. ADALIMUMAB [Concomitant]
     Active Substance: ADALIMUMAB
     Indication: Rheumatoid arthritis
     Route: 058
  348. ADALIMUMAB [Concomitant]
     Active Substance: ADALIMUMAB
     Route: 058
  349. AIMOVIG [Concomitant]
     Active Substance: ERENUMAB-AOOE
     Indication: Migraine
  350. ALENDRONIC ACID [Concomitant]
     Active Substance: ALENDRONIC ACID
     Indication: Rheumatoid arthritis
  351. ALENDRONIC ACID [Concomitant]
     Active Substance: ALENDRONIC ACID
     Route: 048
  352. AZATHIOPRINE SODIUM [Concomitant]
     Active Substance: AZATHIOPRINE SODIUM
     Indication: Rheumatoid arthritis
  353. CELEBREX [Concomitant]
     Active Substance: CELECOXIB
     Indication: Product used for unknown indication
     Route: 048
  354. CELEBREX [Concomitant]
     Active Substance: CELECOXIB
  355. CELEBREX [Concomitant]
     Active Substance: CELECOXIB
  356. CELEBREX [Concomitant]
     Active Substance: CELECOXIB
     Route: 048
  357. DESOGESTREL AND ETHINYL ESTRADIOL [Concomitant]
     Active Substance: DESOGESTREL\ETHINYL ESTRADIOL
     Indication: Product used for unknown indication
  358. HYDROCORTISONE [Concomitant]
     Active Substance: HYDROCORTISONE
     Indication: Product used for unknown indication
  359. HYDROCORTISONE PROBUTATE [Concomitant]
     Active Substance: HYDROCORTISONE PROBUTATE
     Indication: Rheumatoid arthritis
  360. LEFLUNOMIDE [Concomitant]
     Active Substance: LEFLUNOMIDE
     Indication: Rheumatoid arthritis
  361. LEFLUNOMIDE [Concomitant]
     Active Substance: LEFLUNOMIDE
  362. LEFLUNOMIDE [Concomitant]
     Active Substance: LEFLUNOMIDE
  363. LEFLUNOMIDE [Concomitant]
     Active Substance: LEFLUNOMIDE
  364. LEFLUNOMIDE [Concomitant]
     Active Substance: LEFLUNOMIDE
     Route: 048
  365. METHOTREXATE [Concomitant]
     Active Substance: METHOTREXATE
     Indication: Rheumatoid arthritis
  366. METHOTREXATE [Concomitant]
     Active Substance: METHOTREXATE
     Route: 048
  367. METHOTREXATE [Concomitant]
     Active Substance: METHOTREXATE
  368. METHOTREXATE [Concomitant]
     Active Substance: METHOTREXATE
  369. METHOTREXATE [Concomitant]
     Active Substance: METHOTREXATE
  370. METHOTREXATE [Concomitant]
     Active Substance: METHOTREXATE
  371. METHOTREXATE [Concomitant]
     Active Substance: METHOTREXATE
     Route: 048
  372. METHOTREXATE [Concomitant]
     Active Substance: METHOTREXATE
  373. METHOTREXATE [Concomitant]
     Active Substance: METHOTREXATE
     Route: 013
  374. METHOTREXATE [Concomitant]
     Active Substance: METHOTREXATE
     Route: 058
  375. METHOTREXATE [Concomitant]
     Active Substance: METHOTREXATE
     Route: 058
  376. METHOTREXATE [Concomitant]
     Active Substance: METHOTREXATE
     Route: 048
  377. METHOTREXATE [Concomitant]
     Active Substance: METHOTREXATE
     Route: 013
  378. METHOTREXATE [Concomitant]
     Active Substance: METHOTREXATE
     Route: 016
  379. METHOTREXATE [Concomitant]
     Active Substance: METHOTREXATE
     Route: 058
  380. METHOTREXATE [Concomitant]
     Active Substance: METHOTREXATE
  381. NAPROSYN [Concomitant]
     Active Substance: NAPROXEN
     Indication: Product used for unknown indication
  382. NAPROSYN [Concomitant]
     Active Substance: NAPROXEN
  383. NAPROXEN [Concomitant]
     Active Substance: NAPROXEN
     Indication: Product used for unknown indication
  384. NUCALA [Concomitant]
     Active Substance: MEPOLIZUMAB
     Indication: Product used for unknown indication
  385. NUCALA [Concomitant]
     Active Substance: MEPOLIZUMAB
  386. NICOTINAMIDE [Concomitant]
     Active Substance: NIACINAMIDE
     Indication: Product used for unknown indication
  387. NICOTINAMIDE [Concomitant]
     Active Substance: NIACINAMIDE

REACTIONS (106)
  - Abdominal pain upper [Unknown]
  - Coeliac disease [Unknown]
  - Helicobacter infection [Unknown]
  - Injection site reaction [Unknown]
  - Osteoarthritis [Unknown]
  - Paraesthesia [Unknown]
  - Peripheral swelling [Unknown]
  - Urticaria [Unknown]
  - Wound [Unknown]
  - Wound infection [Unknown]
  - Adverse event [Unknown]
  - Hospitalisation [Unknown]
  - Abdominal discomfort [Unknown]
  - Abdominal distension [Unknown]
  - Alopecia [Unknown]
  - Anti-cyclic citrullinated peptide antibody positive [Unknown]
  - Arthralgia [Unknown]
  - Arthropathy [Unknown]
  - Asthenia [Unknown]
  - Back injury [Unknown]
  - Blepharospasm [Unknown]
  - Blister [Unknown]
  - Blood cholesterol increased [Unknown]
  - Breast cancer stage III [Unknown]
  - Bursitis [Unknown]
  - C-reactive protein increased [Unknown]
  - Condition aggravated [Unknown]
  - Confusional state [Unknown]
  - Contraindicated product administered [Unknown]
  - Depression [Unknown]
  - Diarrhoea [Unknown]
  - Discomfort [Unknown]
  - Dizziness [Unknown]
  - Drug hypersensitivity [Unknown]
  - Drug ineffective [Unknown]
  - Drug intolerance [Unknown]
  - Drug-induced liver injury [Unknown]
  - Dry mouth [Unknown]
  - Duodenal ulcer perforation [Unknown]
  - Dyspepsia [Unknown]
  - Epilepsy [Unknown]
  - Facet joint syndrome [Unknown]
  - Fall [Unknown]
  - Fatigue [Unknown]
  - Fibromyalgia [Unknown]
  - Finger deformity [Unknown]
  - Folliculitis [Unknown]
  - Gait inability [Unknown]
  - Gastrointestinal disorder [Unknown]
  - Gastrooesophageal reflux disease [Unknown]
  - General physical health deterioration [Unknown]
  - Glossodynia [Unknown]
  - Grip strength decreased [Unknown]
  - Hand deformity [Unknown]
  - Headache [Unknown]
  - Hepatic enzyme [Unknown]
  - Hepatic enzyme increased [Unknown]
  - Hepatitis [Unknown]
  - Hypercholesterolaemia [Unknown]
  - Hypertension [Unknown]
  - Hypoaesthesia [Unknown]
  - Impaired healing [Unknown]
  - Inflammation [Unknown]
  - Infusion related reaction [Unknown]
  - Injury [Unknown]
  - Insomnia [Unknown]
  - Intentional product use issue [Unknown]
  - Irritable bowel syndrome [Unknown]
  - Joint range of motion decreased [Unknown]
  - Joint swelling [Unknown]
  - Lip dry [Unknown]
  - Liver injury [Unknown]
  - Lower respiratory tract infection [Unknown]
  - Lung disorder [Unknown]
  - Memory impairment [Unknown]
  - Migraine [Unknown]
  - Muscle injury [Unknown]
  - Muscle spasms [Unknown]
  - Musculoskeletal pain [Unknown]
  - Nail disorder [Unknown]
  - Nasopharyngitis [Unknown]
  - Night sweats [Unknown]
  - Obesity [Unknown]
  - Off label use [Unknown]
  - Onychomadesis [Unknown]
  - Onychomycosis [Unknown]
  - Pain [Unknown]
  - Pemphigus [Unknown]
  - Pericarditis [Unknown]
  - Peripheral venous disease [Unknown]
  - Pneumonia [Unknown]
  - Product quality issue [Unknown]
  - Psoriatic arthropathy [Unknown]
  - Rash [Unknown]
  - Rheumatoid arthritis [Unknown]
  - Sleep disorder [Unknown]
  - Stomatitis [Unknown]
  - Swelling [Unknown]
  - Synovitis [Unknown]
  - Systemic lupus erythematosus [Unknown]
  - Taste disorder [Unknown]
  - Type 2 diabetes mellitus [Unknown]
  - Vomiting [Unknown]
  - Weight increased [Unknown]
  - Wheezing [Unknown]
  - Abdominal pain [Unknown]
